FAERS Safety Report 7980589-6 (Version None)
Quarter: 2011Q4

REPORT INFORMATION
  Report Type: 
  Country: None (occurrence: None)
  Receive Date: 20111214
  Receipt Date: 20111208
  Transmission Date: 20120403
  Serious: Yes (Death, Hospitalization)
  Sender: FDA-Public Use
  Company Number: US-CELGENEUS-163-21880-11121287

PATIENT
  Sex: Female

DRUGS (6)
  1. REVLIMID [Suspect]
     Dosage: 10 MILLIGRAM
     Route: 048
     Dates: start: 20110301
  2. REVLIMID [Suspect]
     Dosage: 15 MILLIGRAM
     Route: 048
     Dates: start: 20110201
  3. IPRATROPIUM BROMIDE [Concomitant]
     Route: 065
  4. REVLIMID [Suspect]
     Indication: MULTIPLE MYELOMA
     Dosage: 25 MILLIGRAM
     Route: 048
     Dates: start: 20110101
  5. ALBUTEROL [Concomitant]
     Route: 065
  6. SPIRIVA [Concomitant]
     Route: 065

REACTIONS (4)
  - BACTERAEMIA [None]
  - FATIGUE [None]
  - CREATININE RENAL CLEARANCE DECREASED [None]
  - DEATH [None]
